FAERS Safety Report 18927742 (Version 1)
Quarter: 2021Q1

REPORT INFORMATION
  Report Type: Spontaneous
  Country: GB (occurrence: GB)
  Receive Date: 20210223
  Receipt Date: 20210223
  Transmission Date: 20210420
  Serious: Yes (Other)
  Sender: FDA-Public Use
  Company Number: NVSC2021GB038510

PATIENT
  Sex: Male

DRUGS (3)
  1. HYCAMTIN [Suspect]
     Active Substance: TOPOTECAN HYDROCHLORIDE
     Indication: LUNG NEOPLASM MALIGNANT
     Dosage: 5 DF, QD (FOR 5 CONSECUTIVE DAYS, 6 MG TOTAL)
     Route: 048
  2. HYCAMTIN [Suspect]
     Active Substance: TOPOTECAN HYDROCHLORIDE
     Dosage: 5 MG, QD (FOR 5 DAYS)
     Route: 048
  3. ASPIRIN. [Concomitant]
     Active Substance: ASPIRIN
     Indication: PRODUCT USED FOR UNKNOWN INDICATION
     Dosage: UNK
     Route: 065

REACTIONS (4)
  - Decreased immune responsiveness [Unknown]
  - Product availability issue [Unknown]
  - Illness [Unknown]
  - Product dose omission issue [Unknown]
